FAERS Safety Report 24276803 (Version 1)
Quarter: 2024Q3

REPORT INFORMATION
  Report Type: Spontaneous
  Country: CA (occurrence: CA)
  Receive Date: 20240903
  Receipt Date: 20240903
  Transmission Date: 20241017
  Serious: Yes (Other)
  Sender: ACCORD
  Company Number: None

PATIENT

DRUGS (2)
  1. APIXABAN [Suspect]
     Active Substance: APIXABAN
     Indication: Tumour thrombosis
     Route: 048
  2. DASATINIB [Suspect]
     Active Substance: DASATINIB
     Indication: Neoplasm malignant

REACTIONS (2)
  - Drug interaction [Unknown]
  - Thrombosis [Unknown]
